FAERS Safety Report 23183013 (Version 1)
Quarter: 2023Q4

REPORT INFORMATION
  Report Type: Spontaneous
  Country: PT (occurrence: PT)
  Receive Date: 20231114
  Receipt Date: 20231114
  Transmission Date: 20240110
  Serious: Yes (Hospitalization, Other)
  Sender: FDA-Public Use
  Company Number: PT-MYLANLABS-2023M1080551

PATIENT
  Age: 64 Year
  Sex: Male

DRUGS (1)
  1. CLOZAPINE [Suspect]
     Active Substance: CLOZAPINE
     Indication: Product used for unknown indication
     Dosage: 625 MILLIGRAM, QD
     Route: 065
     Dates: start: 202303

REACTIONS (8)
  - Schizophrenia [Unknown]
  - Neutropenia [Recovering/Resolving]
  - Tooth abscess [Unknown]
  - Blunted affect [Not Recovered/Not Resolved]
  - Poverty of speech [Not Recovered/Not Resolved]
  - Social problem [Not Recovered/Not Resolved]
  - Altered state of consciousness [Unknown]
  - Oxygen saturation decreased [Unknown]

NARRATIVE: CASE EVENT DATE: 20230301
